FAERS Safety Report 7826835-0 (Version None)
Quarter: 2011Q4

REPORT INFORMATION
  Report Type: 
  Country: None (occurrence: None)
  Receive Date: 20111020
  Receipt Date: 20111011
  Transmission Date: 20120403
  Serious: Yes (Other)
  Sender: FDA-Public Use
  Company Number: BR-US-EMD SERONO, INC.-7090140

PATIENT
  Age: 28 Year
  Sex: Female

DRUGS (4)
  1. PHENOBARBITAL TAB [Concomitant]
  2. REBIF [Suspect]
     Indication: RELAPSING-REMITTING MULTIPLE SCLEROSIS
     Dates: start: 20100520
  3. AMITRIPTYLINE HCL [Concomitant]
  4. ACETAMINOPHEN [Concomitant]

REACTIONS (2)
  - NODULE [None]
  - CONVULSION [None]
